FAERS Safety Report 6972482-2 (Version None)
Quarter: 2010Q3

REPORT INFORMATION
  Report Type: 
  Country: None (occurrence: None)
  Receive Date: 20100907
  Receipt Date: 20100825
  Transmission Date: 20110219
  Serious: No
  Sender: FDA-Public Use
  Company Number: 017939

PATIENT

DRUGS (2)
  1. LACOSAMIDE [Suspect]
     Dosage: 400 MG
  2. KEPPRA [Suspect]
     Dosage: 3000 MG

REACTIONS (1)
  - DIALYSIS [None]
